FAERS Safety Report 4512516-8 (Version None)
Quarter: 2004Q4

REPORT INFORMATION
  Report Type: 
  Country: None (occurrence: None)
  Receive Date: 20041124
  Receipt Date: 20041029
  Transmission Date: 20050328
  Serious: Yes (Hospitalization, Other)
  Sender: FDA-Public Use
  Company Number: US_0404102245

PATIENT
  Age: 45 Year
  Sex: Female
  Weight: 75 kg

DRUGS (23)
  1. ZYPREXA [Suspect]
     Indication: BIPOLAR I DISORDER
     Dosage: 50 MG/1 DAY
     Dates: start: 20010101, end: 20020731
  2. PROZAC [Suspect]
     Dosage: 80 MG/1 DAY
     Dates: start: 19910101, end: 20030301
  3. HUMULIN N [Concomitant]
  4. HUMULIN R [Concomitant]
  5. EFFEXOR XR [Concomitant]
  6. XANAX (ALPRAZOLAM DUM) [Concomitant]
  7. BENTYL [Concomitant]
  8. LIPITOR [Concomitant]
  9. IMDUR [Concomitant]
  10. PEPCID AC [Concomitant]
  11. GEODON (ZIPRASIDNE HYDROCHLORIDE) [Concomitant]
  12. TOPAMAX [Concomitant]
  13. ULTRAM [Concomitant]
  14. PROPOXYPHENE NAPSYLATE [Concomitant]
  15. IBUPROFEN [Concomitant]
  16. SKELAXIN [Concomitant]
  17. CELEBREX [Concomitant]
  18. CYCLOBENZAPRINE [Concomitant]
  19. ROXICET [Concomitant]
  20. SEROQUEL [Concomitant]
  21. RISPERIDONE [Concomitant]
  22. LITHUM CARBONATE [Concomitant]
  23. LOPRESSOR [Concomitant]

REACTIONS (41)
  - ABDOMINAL DISTENSION [None]
  - ABDOMINAL PAIN UPPER [None]
  - ANGINA UNSTABLE [None]
  - ASTHENIA [None]
  - BACK PAIN [None]
  - BLOOD CHOLESTEROL INCREASED [None]
  - BLOOD TRIGLYCERIDES INCREASED [None]
  - BUNDLE BRANCH BLOCK LEFT [None]
  - CHEST PAIN [None]
  - CONFUSIONAL STATE [None]
  - CONSTIPATION [None]
  - CRYING [None]
  - DECREASED APPETITE [None]
  - DEHYDRATION [None]
  - DEPRESSION [None]
  - DIABETES MELLITUS INADEQUATE CONTROL [None]
  - DISTURBANCE IN ATTENTION [None]
  - DYSURIA [None]
  - EJECTION FRACTION DECREASED [None]
  - ELECTROCARDIOGRAM T WAVE INVERSION [None]
  - GLYCOSURIA [None]
  - HEADACHE [None]
  - HEART RATE INCREASED [None]
  - HEPATIC STEATOSIS [None]
  - HUNGER [None]
  - HYPERLIPIDAEMIA [None]
  - HYPOKALAEMIA [None]
  - INITIAL INSOMNIA [None]
  - JOINT SPRAIN [None]
  - LETHARGY [None]
  - MUCOSAL DRYNESS [None]
  - MYOCARDIAL ISCHAEMIA [None]
  - NAUSEA [None]
  - POLLAKIURIA [None]
  - RENAL CYST [None]
  - SEPSIS [None]
  - SOMNOLENCE [None]
  - THIRST [None]
  - VISION BLURRED [None]
  - WEIGHT DECREASED [None]
  - WEIGHT INCREASED [None]
